FAERS Safety Report 5731694-6 (Version None)
Quarter: 2008Q2

REPORT INFORMATION
  Report Type: 
  Country: None (occurrence: None)
  Receive Date: 20080508
  Receipt Date: 20080501
  Transmission Date: 20081010
  Serious: Yes (Death)
  Sender: FDA-Public Use
  Company Number: US-ELI_LILLY_AND_COMPANY-US200803002794

PATIENT
  Age: 21 Year
  Sex: Male

DRUGS (1)
  1. XIGRIS [Suspect]
     Indication: SEPSIS

REACTIONS (3)
  - ACCIDENTAL OVERDOSE [None]
  - CEREBRAL HAEMORRHAGE [None]
  - ENCEPHALOMALACIA [None]
